FAERS Safety Report 4546788-0 (Version None)
Quarter: 2005Q1

REPORT INFORMATION
  Report Type: 
  Country: None (occurrence: None)
  Receive Date: 20050105
  Receipt Date: 20041227
  Transmission Date: 20050727
  Serious: Yes (Death, Hospitalization)
  Sender: FDA-Public Use
  Company Number: 2004215843NO

PATIENT
  Age: 91 Year
  Sex: Male

DRUGS (11)
  1. LINEZOLID TABLET (LINEZOLID) [Suspect]
     Indication: INFECTION
     Dosage: 1200 MG (600 MG, BID), ORAL
     Route: 048
     Dates: start: 20040322, end: 20040325
  2. ALBYL-ENTEROSOLUBILE (ACETYLSALICYLIC ACID, MAGNESIUM OXIDE) [Concomitant]
  3. CITALOPRAM HYDROBROMIDE [Concomitant]
  4. LEVOTHYROXINE SODIUM [Concomitant]
  5. FERROUS SULFATE TAB [Concomitant]
  6. ACETAMINOPHEN [Concomitant]
  7. FENTANYL [Concomitant]
  8. LACTULOSE [Concomitant]
  9. CIPROFLOXACIN [Concomitant]
  10. ACETYLCYSTEINE [Concomitant]
  11. MECOBALAMIN (MECOBALAMIN) [Concomitant]

REACTIONS (8)
  - ARTHROPATHY [None]
  - ASPIRATION [None]
  - CEREBROVASCULAR ACCIDENT [None]
  - HAEMOGLOBIN DECREASED [None]
  - PAIN [None]
  - PUPILLARY LIGHT REFLEX TESTS ABNORMAL [None]
  - VOMITING [None]
  - WOUND COMPLICATION [None]
